FAERS Safety Report 15369673 (Version 1)
Quarter: 2018Q3

REPORT INFORMATION
  Report Type: Spontaneous
  Country: US (occurrence: US)
  Receive Date: 20180904
  Receipt Date: 20180904
  Transmission Date: 20181010
  Serious: Yes (Other)
  Sender: FDA-Public Use
  Company Number: None

PATIENT
  Sex: Female

DRUGS (1)
  1. CAPECITABINE 500MG WEST?WARD [Suspect]
     Active Substance: CAPECITABINE
     Indication: NEOPLASM MALIGNANT
     Dosage: 1500 MG TWICE ADAY 14 DAYS ON 7 DAYS OFF BY MOUTH
     Route: 048
     Dates: start: 20180627

REACTIONS (1)
  - Diarrhoea [None]
